FAERS Safety Report 20362019 (Version 1)
Quarter: 2022Q1

REPORT INFORMATION
  Report Type: Spontaneous
  Country: AU (occurrence: None)
  Receive Date: 20220121
  Receipt Date: 20220121
  Transmission Date: 20220423
  Serious: Yes (Death, Hospitalization)
  Sender: FDA-Public Use
  Company Number: 2022A030994

PATIENT
  Age: 62 Year
  Sex: Female

DRUGS (2)
  1. NEXIUM [Suspect]
     Active Substance: ESOMEPRAZOLE MAGNESIUM
     Route: 065
  2. ASTRAZENECA COVID-19 VACCINE [Suspect]
     Active Substance: AZD-1222
     Dosage: 26-AUG-2021 AND 26-OCT-2021
     Route: 030

REACTIONS (4)
  - Neoplasm malignant [Fatal]
  - Concomitant disease aggravated [Fatal]
  - Injection site pain [Unknown]
  - Nausea [Unknown]

NARRATIVE: CASE EVENT DATE: 20210919
